FAERS Safety Report 6283774-7 (Version None)
Quarter: 2009Q3

REPORT INFORMATION
  Report Type: 
  Country: None (occurrence: None)
  Receive Date: 20090724
  Receipt Date: 20090716
  Transmission Date: 20100115
  Serious: Yes (Other)
  Sender: FDA-Public Use
  Company Number: US-ASTRAZENECA-2009UW14288

PATIENT
  Age: 13964 Day
  Sex: Female
  Weight: 74.8 kg

DRUGS (10)
  1. SEROQUEL XR [Suspect]
     Route: 048
     Dates: start: 20090529
  2. SEROQUEL XR [Suspect]
     Route: 048
  3. SEROQUEL XR [Suspect]
     Route: 048
  4. PROZAC [Concomitant]
     Indication: DEPRESSION
     Route: 048
     Dates: start: 20090412, end: 20090501
  5. PROZAC [Concomitant]
     Route: 048
     Dates: start: 20090501
  6. TRAZODONE [Concomitant]
     Indication: SLEEP DISORDER
     Route: 048
     Dates: start: 20090512
  7. REMERON [Concomitant]
  8. BUSPAR [Concomitant]
  9. ZOLOFT [Concomitant]
  10. PAXIL [Concomitant]

REACTIONS (3)
  - CRYING [None]
  - FATIGUE [None]
  - NEUROLEPTIC MALIGNANT SYNDROME [None]
